FAERS Safety Report 23691307 (Version 1)
Quarter: 2024Q2

REPORT INFORMATION
  Report Type: Spontaneous
  Country: CA (occurrence: CA)
  Receive Date: 20240401
  Receipt Date: 20240401
  Transmission Date: 20240716
  Serious: Yes (Hospitalization)
  Sender: FDA-Public Use
  Company Number: CA-TEVA-VS-3176531

PATIENT
  Age: 63 Year
  Sex: Male

DRUGS (10)
  1. AZATHIOPRINE [Suspect]
     Active Substance: AZATHIOPRINE
     Indication: Liver transplant
     Route: 065
  2. LACOSAMIDE [Suspect]
     Active Substance: LACOSAMIDE
     Indication: Partial seizures
     Route: 065
  3. LEVETIRACETAM [Suspect]
     Active Substance: LEVETIRACETAM
     Indication: Partial seizures
     Route: 065
  4. PROPOFOL [Suspect]
     Active Substance: PROPOFOL
     Indication: Partial seizures
     Dosage: DOSE FORM: NOT SPECIFIED
     Route: 065
  5. SULFAMETHOXAZOLE AND TRIMETHOPRIM [Suspect]
     Active Substance: SULFAMETHOXAZOLE\TRIMETHOPRIM
     Indication: Antiviral prophylaxis
     Dosage: DOSE FORM: NOT SPECIFIED
     Route: 065
  6. VALGANCICLOVIR [Suspect]
     Active Substance: VALGANCICLOVIR
     Indication: Antiviral prophylaxis
     Dosage: DOSE FORM: NOT SPECIFIED
     Route: 065
  7. MIDAZOLAM [Suspect]
     Active Substance: MIDAZOLAM
     Indication: Partial seizures
     Dosage: (UNKNOWN)
     Route: 065
  8. PHENOBARBITAL [Suspect]
     Active Substance: PHENOBARBITAL
     Indication: Partial seizures
     Dosage: DOSE FORM: NOT SPECIFIED
     Route: 065
  9. PHENYTOIN [Suspect]
     Active Substance: PHENYTOIN
     Indication: Partial seizures
     Dosage: DOSE FORM: NOT SPECIFIED
     Route: 065
  10. SIMULECT [Suspect]
     Active Substance: BASILIXIMAB
     Indication: Immunosuppression
     Dosage: DOSE FORM: POWDER FOR SOLUTION INTRAVENOUS
     Route: 065

REACTIONS (2)
  - Neutropenia [Unknown]
  - Anaemia [Unknown]
